FAERS Safety Report 17874429 (Version 2)
Quarter: 2020Q3

REPORT INFORMATION
  Report Type: Spontaneous
  Country: US (occurrence: US)
  Receive Date: 20200609
  Receipt Date: 20200907
  Transmission Date: 20201103
  Serious: Yes (Hospitalization, Other)
  Sender: FDA-Public Use
  Company Number: US-DRREDDYS-USA/USA/20/0123832

PATIENT
  Age: 76 Year
  Sex: Female
  Weight: 44 kg

DRUGS (1)
  1. HEPARIN SODIUM. [Suspect]
     Active Substance: HEPARIN SODIUM
     Indication: THROMBOSIS PROPHYLAXIS
     Dosage: HIGH WEIGHT?BASED DOSES ( GREATER THAN 300 UNITS/KG/DAY)
     Route: 065

REACTIONS (5)
  - Haemorrhage intracranial [Recovering/Resolving]
  - Aphasia [Recovering/Resolving]
  - Activated partial thromboplastin time prolonged [Recovered/Resolved]
  - Subdural haematoma [Recovering/Resolving]
  - Anti factor X activity increased [Unknown]
